FAERS Safety Report 17997722 (Version 1)
Quarter: 2020Q3

REPORT INFORMATION
  Report Type: Spontaneous
  Country: CA (occurrence: CA)
  Receive Date: 20200708
  Receipt Date: 20200708
  Transmission Date: 20201103
  Serious: Yes (Other)
  Sender: FDA-Public Use
  Company Number: CA-NAPPMUNDI-CAN-2020-0011281

PATIENT
  Sex: Female

DRUGS (2)
  1. L?TRYPTOPHAN [Concomitant]
     Active Substance: TRYPTOPHAN
     Indication: INSOMNIA
  2. HYDROMORPH CONTIN [Suspect]
     Active Substance: HYDROMORPHONE
     Indication: PAIN
     Dosage: UNK, TID
     Route: 048

REACTIONS (6)
  - Product dose omission in error [Unknown]
  - Sinus tachycardia [Unknown]
  - Electrocardiogram QRS complex abnormal [Unknown]
  - Hypertension [Not Recovered/Not Resolved]
  - Chest discomfort [Recovered/Resolved]
  - Dyspnoea [Recovered/Resolved]
